FAERS Safety Report 8547666-2 (Version None)
Quarter: 2012Q3

REPORT INFORMATION
  Report Type: 
  Country: None (occurrence: None)
  Receive Date: 20120727
  Receipt Date: 20111109
  Transmission Date: 20120928
  Serious: Yes (Life-Threatening, Other)
  Sender: FDA-Public Use
  Company Number: US-ASTRAZENECA-2011SE68530

PATIENT
  Sex: Female

DRUGS (1)
  1. SEROQUEL XR [Suspect]
     Route: 048

REACTIONS (15)
  - DIZZINESS [None]
  - CONFUSIONAL STATE [None]
  - THIRST [None]
  - ABDOMINAL DISCOMFORT [None]
  - ASTHENIA [None]
  - HUNGER [None]
  - DRY MOUTH [None]
  - NASAL CONGESTION [None]
  - THOUGHT BLOCKING [None]
  - THINKING ABNORMAL [None]
  - SOMNOLENCE [None]
  - SUICIDE ATTEMPT [None]
  - HYPERSOMNIA [None]
  - WEIGHT INCREASED [None]
  - FATIGUE [None]
